FAERS Safety Report 9717834 (Version 1)
Quarter: 2013Q4

REPORT INFORMATION
  Report Type: Spontaneous
  Country: US (occurrence: US)
  Receive Date: 20131125
  Receipt Date: 20131125
  Transmission Date: 20140711
  Serious: No
  Sender: FDA-Public Use
  Company Number: US-VIVUS-2012V1000257

PATIENT
  Age: 35 Year
  Sex: Female

DRUGS (2)
  1. QSYMIA [Suspect]
     Indication: WEIGHT DECREASED
     Route: 048
     Dates: start: 201210
  2. QSYMIA [Suspect]
     Route: 048
     Dates: end: 20121118

REACTIONS (4)
  - Migraine [Unknown]
  - Paraesthesia [Unknown]
  - Vision blurred [Unknown]
  - Disturbance in attention [Unknown]
